FAERS Safety Report 4505321-X (Version None)
Quarter: 2004Q4

REPORT INFORMATION
  Report Type: 
  Country: None (occurrence: None)
  Receive Date: 20041015
  Receipt Date: 20040326
  Transmission Date: 20050328
  Serious: Yes (Other)
  Sender: FDA-Public Use
  Company Number: 2004021475

PATIENT
  Age: 50 Year
  Sex: Female

DRUGS (6)
  1. NEURONTIN [Suspect]
     Indication: POST HERPETIC NEURALGIA
     Dosage: 900 MG (TID), ORAL
     Route: 048
     Dates: start: 20040301, end: 20040301
  2. GEFITINIB (GEFITINIB) [Suspect]
     Indication: LUNG NEOPLASM MALIGNANT
     Dosage: 250 MG (DAILY), ORAL
     Route: 048
     Dates: start: 20040201
  3. PROPACET 100 [Concomitant]
  4. FOLIC ACID [Concomitant]
  5. CALCIUM (CALCIUM) [Concomitant]
  6. MULTIVITAMINS (ASCORBIC ACID, ERGOCALCIFEROL, FOLIC ACID, NICOTANAMIDE [Concomitant]

REACTIONS (5)
  - DIARRHOEA [None]
  - HAEMATEMESIS [None]
  - HAEMOPTYSIS [None]
  - NAUSEA [None]
  - VOMITING [None]
